FAERS Safety Report 9286497 (Version 1)
Quarter: 2013Q2

REPORT INFORMATION
  Report Type: Spontaneous
  Country: US (occurrence: US)
  Receive Date: 20130513
  Receipt Date: 20130513
  Transmission Date: 20140414
  Serious: Yes (Other)
  Sender: FDA-Public Use
  Company Number: US-BAYER-2013-056121

PATIENT
  Sex: Male

DRUGS (2)
  1. STIVARGA [Suspect]
     Indication: COLON CANCER
     Dosage: 160 MG, QD
     Route: 048
     Dates: start: 20130123
  2. STIVARGA [Suspect]
     Indication: COLON CANCER
     Dosage: 160 MG, QD
     Route: 048
     Dates: start: 20130123

REACTIONS (7)
  - Hyperkeratosis [None]
  - Blister [None]
  - Dyspnoea [None]
  - Dizziness [None]
  - Weight decreased [None]
  - Blister [None]
  - Gait disturbance [None]
